FAERS Safety Report 18452492 (Version 1)
Quarter: 2020Q4

REPORT INFORMATION
  Report Type: Spontaneous
  Country: CN (occurrence: CN)
  Receive Date: 20201102
  Receipt Date: 20201102
  Transmission Date: 20210114
  Serious: Yes (Death, Other)
  Sender: FDA-Public Use
  Company Number: CN-JIANGSU HENGRUI MEDICINE CO., LTD.-2093511

PATIENT
  Age: 57 Year
  Sex: Male

DRUGS (4)
  1. PACLITAXEL. [Suspect]
     Active Substance: PACLITAXEL
     Route: 041
     Dates: start: 20200520
  2. APATINIB MESYLATE [Suspect]
     Active Substance: APATINIB
     Route: 048
     Dates: start: 20200520
  3. OXALIPLATIN INJECTION USP, 5 MG/ML, PACKAGED IN 50 MG/10 ML AND 100 MG [Suspect]
     Active Substance: OXALIPLATIN
     Route: 041
     Dates: start: 20200520
  4. CAMRELIZUMAB FOR INJECTION [Suspect]
     Active Substance: CAMRELIZUMAB
     Dates: start: 20200820

REACTIONS (8)
  - Oesophagobronchial fistula [Recovering/Resolving]
  - Asthenia [Not Recovered/Not Resolved]
  - Myelosuppression [Recovering/Resolving]
  - Product use in unapproved indication [Unknown]
  - Pleural effusion [Recovering/Resolving]
  - Death [Fatal]
  - Blood glucose increased [Unknown]
  - Pneumonia [Recovering/Resolving]

NARRATIVE: CASE EVENT DATE: 20200521
